FAERS Safety Report 25476350 (Version 6)
Quarter: 2025Q4

REPORT INFORMATION
  Report Type: Spontaneous
  Country: JP (occurrence: JP)
  Receive Date: 20250625
  Receipt Date: 20251014
  Transmission Date: 20260118
  Serious: Yes (Death, Life-Threatening, Hospitalization, Other)
  Sender: GLAXOSMITHKLINE
  Company Number: JP-GSKJP-JP2025JPN076135AA

PATIENT
  Age: 76 Year
  Sex: Male
  Weight: 57.5 kg

DRUGS (19)
  1. DAPRODUSTAT [Suspect]
     Active Substance: DAPRODUSTAT
     Indication: Nephrogenic anaemia
     Dosage: 4 MG, 1D
  2. DAPRODUSTAT [Suspect]
     Active Substance: DAPRODUSTAT
     Dosage: 8 MG, 1D
  3. DAPRODUSTAT [Suspect]
     Active Substance: DAPRODUSTAT
     Dosage: 6 MG, 1D
  4. DAPRODUSTAT [Suspect]
     Active Substance: DAPRODUSTAT
     Dosage: 4 MG, 1D
  5. EVOCALCET [Suspect]
     Active Substance: EVOCALCET
     Dosage: 2 MG, 1D, AFTER BREAKFAST
  6. AMLODIPINE [Concomitant]
     Active Substance: AMLODIPINE BESYLATE
     Dosage: 5 MG, BID, AFTER BREAKFAST AND DINNER
  7. EBASTINE [Concomitant]
     Active Substance: EBASTINE
     Dosage: 10 MG, 1D, AFTER DINNER
  8. ALFACALCIDOL [Concomitant]
     Active Substance: ALFACALCIDOL
     Dosage: 0.5 UG, 1D, AFTER BREAKFAST
  9. ROSUVASTATIN [Concomitant]
     Active Substance: ROSUVASTATIN
     Dosage: 2.5 MG, 1D, AFTER BREAKFAST
  10. FUROSEMIDE [Concomitant]
     Active Substance: FUROSEMIDE
     Dosage: 10 MG, 1D, AFTER BREAKFAST
  11. BISOPROLOL FUMARATE [Concomitant]
     Active Substance: BISOPROLOL FUMARATE
     Dosage: 1.875 MG, 1D, AFTER BREAKFAST
  12. ASPIRIN [Concomitant]
     Active Substance: ASPIRIN
     Dosage: 100 MG, 1D, AFTER BREAKFAST
  13. LANSOPRAZOLE [Concomitant]
     Active Substance: LANSOPRAZOLE
     Dosage: 15 MG, 1D, AFTER BREAKFAST
  14. FEBUXOSTAT [Concomitant]
     Active Substance: FEBUXOSTAT
     Dosage: 10 MG, 1D, AFTER BREAKFAST
  15. MEMANTINE HYDROCHLORIDE [Concomitant]
     Active Substance: MEMANTINE HYDROCHLORIDE
     Dosage: 10 MG, 1D, AFTER BREAKFAST
  16. CLOPIDOGREL BISULFATE [Concomitant]
     Active Substance: CLOPIDOGREL BISULFATE
     Dosage: 75 MG, 1D, AFTER BREAKFAST
  17. VALSARTAN [Concomitant]
     Active Substance: VALSARTAN
     Dosage: 40 MG, 1D, AFTER BREAKFAST
  18. ACETAMINOPHEN\TRAMADOL HYDROCHLORIDE [Concomitant]
     Active Substance: ACETAMINOPHEN\TRAMADOL HYDROCHLORIDE
     Dosage: 1 DF, BID, AFTER BREAKFAST AND DINNER
  19. DAYVIGO [Concomitant]
     Active Substance: LEMBOREXANT
     Dosage: 5 MG, 1D, BEFORE BEDTIME

REACTIONS (25)
  - Lung neoplasm malignant [Fatal]
  - Metastases to lymph nodes [Fatal]
  - Metastases to lung [Fatal]
  - Metastases to liver [Fatal]
  - Enterocolitis [Fatal]
  - Metastases to pleura [Fatal]
  - Swelling [Fatal]
  - Swelling face [Fatal]
  - Vomiting [Fatal]
  - Diarrhoea [Fatal]
  - Pyrexia [Fatal]
  - Hepatic function abnormal [Fatal]
  - Decreased appetite [Fatal]
  - Localised oedema [Fatal]
  - Pleural effusion [Fatal]
  - Lymphadenopathy [Fatal]
  - Peripheral arterial occlusive disease [Fatal]
  - Intervertebral disc degeneration [Fatal]
  - Cerebral infarction [Fatal]
  - Arteriosclerosis [Fatal]
  - Rib fracture [Fatal]
  - Renal atrophy [Fatal]
  - Cholelithiasis [Fatal]
  - Interstitial lung disease [Fatal]
  - Pleurisy [Fatal]

NARRATIVE: CASE EVENT DATE: 20250220
